FAERS Safety Report 9844611 (Version 1)
Quarter: 2014Q1

REPORT INFORMATION
  Report Type: Spontaneous
  Country: US (occurrence: None)
  Receive Date: 20140123
  Receipt Date: 20140123
  Transmission Date: 20141002
  Serious: No
  Sender: FDA-Public Use
  Company Number: None

PATIENT
  Age: 36 Year
  Sex: Female
  Weight: 62.6 kg

DRUGS (1)
  1. MIRVASO [Suspect]
     Dosage: I TUBE ?ONCE DAILY ?APPLIED TO A SURFACE, USUALLY THE SKIN
     Route: 061
     Dates: start: 20140102, end: 20140105

REACTIONS (4)
  - Hot flush [None]
  - Erythema [None]
  - Condition aggravated [None]
  - Product quality issue [None]
